FAERS Safety Report 5730076-0 (Version None)
Quarter: 2008Q2

REPORT INFORMATION
  Report Type: 
  Country: None (occurrence: None)
  Receive Date: 20080505
  Receipt Date: 20080505
  Transmission Date: 20081010
  Serious: Yes (Life-Threatening, Other)
  Sender: FDA-Public Use
  Company Number: None

PATIENT
  Age: 88 Year
  Sex: Male
  Weight: 72.5755 kg

DRUGS (2)
  1. PLAVIX [Suspect]
     Indication: ACUTE CORONARY SYNDROME
     Dosage: (1) CAP AT HOME (9) CAPS OVERDOSE AT HOSPITAL
     Dates: start: 20070522, end: 20070523
  2. PLAVIX [Suspect]
     Indication: THROMBOSIS
     Dosage: (1) CAP AT HOME (9) CAPS OVERDOSE AT HOSPITAL
     Dates: start: 20070522, end: 20070523

REACTIONS (11)
  - CHEST PAIN [None]
  - CONCUSSION [None]
  - DIZZINESS [None]
  - ENDOSCOPY UPPER GASTROINTESTINAL TRACT ABNORMAL [None]
  - FAECES DISCOLOURED [None]
  - FALL [None]
  - GINGIVAL BLEEDING [None]
  - HAEMORRHAGE [None]
  - INCORRECT DOSE ADMINISTERED [None]
  - MUSCLE TIGHTNESS [None]
  - PARALYSIS [None]
